FAERS Safety Report 4988595-0 (Version None)
Quarter: 2006Q2

REPORT INFORMATION
  Report Type: 
  Country: None (occurrence: None)
  Receive Date: 20060426
  Receipt Date: 20060214
  Transmission Date: 20061013
  Serious: Yes (Hospitalization)
  Sender: FDA-Public Use
  Company Number: HU200604000199

PATIENT
  Age: 60 Year
  Sex: Female

DRUGS (4)
  1. HUMALOG [Suspect]
     Indication: DIABETES MELLITUS
     Dosage: 22 IU, 3/D, SUBCUTANEOUS
     Route: 058
     Dates: start: 19910101
  2. HUMULIN N [Suspect]
     Indication: DIABETES MELLITUS
     Dosage: 13 IU, 3/D
     Dates: start: 19910101
  3. DOXILEK (CALCIUM DOBESILATE) [Concomitant]
  4. BISOPROLOL FUMARATE [Concomitant]

REACTIONS (4)
  - BLOOD GLUCOSE INCREASED [None]
  - BLOOD PRESSURE INCREASED [None]
  - DEVICE MALFUNCTION [None]
  - SYNCOPE [None]
